FAERS Safety Report 10444615 (Version 2)
Quarter: 2015Q1

REPORT INFORMATION
  Report Type: Spontaneous
  Country: US (occurrence: US)
  Receive Date: 20140910
  Receipt Date: 20150123
  Transmission Date: 20150720
  Serious: Yes (Hospitalization, Other)
  Sender: FDA-Public Use
  Company Number: US-009507513-1409USA004479

PATIENT
  Sex: Female
  Weight: 68.27 kg

DRUGS (1)
  1. JANUVIA [Suspect]
     Active Substance: SITAGLIPTIN PHOSPHATE
     Indication: TYPE 2 DIABETES MELLITUS
     Dosage: 100 MG, QD
     Route: 048
     Dates: start: 20121008, end: 20121106

REACTIONS (34)
  - Renal failure [Unknown]
  - Diverticulitis [Unknown]
  - Paraproteinaemia [Unknown]
  - Cataract operation [Unknown]
  - Hypovolaemia [Unknown]
  - Depression [Unknown]
  - Polyarthritis [Unknown]
  - Anxiety [Not Recovered/Not Resolved]
  - Gastrooesophageal reflux disease [Unknown]
  - Constipation [Unknown]
  - Rheumatoid arthritis [Unknown]
  - Hiatus hernia [Unknown]
  - Back pain [Unknown]
  - Pancreatic carcinoma [Unknown]
  - Pancreaticoduodenectomy [Unknown]
  - Diverticulum [Unknown]
  - Dizziness [Unknown]
  - Adrenal insufficiency [Unknown]
  - Fibromyalgia [Unknown]
  - Urinary tract infection [Unknown]
  - Hallucination [Unknown]
  - Pulmonary mass [Unknown]
  - Radiotherapy [Unknown]
  - Hypertension [Unknown]
  - Aortic aneurysm [Unknown]
  - Diarrhoea [Not Recovered/Not Resolved]
  - Lung disorder [Unknown]
  - Pancreatitis [Unknown]
  - Tendon operation [Unknown]
  - Fall [Unknown]
  - Gout [Unknown]
  - Hyperlipidaemia [Unknown]
  - Hypothyroidism [Unknown]
  - Chronic obstructive pulmonary disease [Not Recovered/Not Resolved]

NARRATIVE: CASE EVENT DATE: 2013
